FAERS Safety Report 12898245 (Version 1)
Quarter: 2016Q4

REPORT INFORMATION
  Report Type: Spontaneous
  Country: US (occurrence: US)
  Receive Date: 20161031
  Receipt Date: 20161031
  Transmission Date: 20170207
  Serious: No
  Sender: FDA-Public Use
  Company Number: US-BIOMARINAP-US-2016-111558

PATIENT
  Age: 6 Year
  Sex: Male
  Weight: 29.2 kg

DRUGS (1)
  1. KUVAN [Suspect]
     Active Substance: SAPROPTERIN DIHYDROCHLORIDE
     Indication: PHENYLKETONURIA
     Dosage: 600 MG, QD
     Route: 048
     Dates: start: 20161001

REACTIONS (3)
  - Upper respiratory tract infection [Recovered/Resolved]
  - Nasopharyngitis [Not Recovered/Not Resolved]
  - Headache [Recovered/Resolved]

NARRATIVE: CASE EVENT DATE: 20161021
